FAERS Safety Report 5563175-7 (Version None)
Quarter: 2007Q4

REPORT INFORMATION
  Report Type: 
  Country: None (occurrence: None)
  Receive Date: 20071217
  Receipt Date: 20071207
  Transmission Date: 20080405
  Serious: Yes (Other)
  Sender: FDA-Public Use
  Company Number: HQWYE051206SEP07

PATIENT
  Age: 48 Year
  Sex: Male

DRUGS (4)
  1. PANTOLOC [Suspect]
     Indication: HELICOBACTER GASTRITIS
     Dosage: ^2/DAY 3 DF^
     Route: 048
     Dates: start: 20051110, end: 20051114
  2. CLARITHROMYCIN [Suspect]
     Indication: HELICOBACTER GASTRITIS
     Dosage: ^2/DAY 3 DF^
     Route: 048
     Dates: start: 20051110, end: 20051114
  3. NEXIUM [Concomitant]
     Indication: GASTRITIS
     Dosage: ^40^ (FREQUENCY UNSPECIFIED)
  4. AMOXICILLIN [Suspect]
     Indication: HELICOBACTER GASTRITIS
     Dosage: ^2/DAY 3 DF^
     Route: 048
     Dates: start: 20051110, end: 20051114

REACTIONS (4)
  - HALLUCINATION [None]
  - NIGHTMARE [None]
  - PANIC ATTACK [None]
  - SUICIDAL IDEATION [None]
